FAERS Safety Report 11245563 (Version 7)
Quarter: 2017Q4

REPORT INFORMATION
  Report Type: Report from Study
  Country: None (occurrence: US)
  Receive Date: 20150707
  Receipt Date: 20171229
  Transmission Date: 20180320
  Serious: Yes (Other)
  Sender: FDA-Public Use
  Company Number: US-ABBVIE-15K-163-1418517-00

PATIENT
  Age: 72 Year
  Sex: Female
  Weight: 94.43 kg

DRUGS (17)
  1. GABAPENTIN. [Suspect]
     Active Substance: GABAPENTIN
     Indication: NEUROPATHY PERIPHERAL
     Route: 065
  2. ZANTAC [Concomitant]
     Active Substance: RANITIDINE HYDROCHLORIDE
     Indication: GASTROOESOPHAGEAL REFLUX DISEASE
  3. CALCIUM [Concomitant]
     Active Substance: CALCIUM
     Indication: PRODUCT USED FOR UNKNOWN INDICATION
  4. VITAMIN D [Concomitant]
     Active Substance: CHOLECALCIFEROL
     Indication: VITAMIN SUPPLEMENTATION
  5. EXELON [Concomitant]
     Active Substance: RIVASTIGMINE TARTRATE
     Indication: MEMORY IMPAIRMENT
  6. BENTYL [Concomitant]
     Active Substance: DICYCLOMINE HYDROCHLORIDE
     Indication: IRRITABLE BOWEL SYNDROME
  7. CALCITRIOL. [Concomitant]
     Active Substance: CALCITRIOL
     Indication: MINERAL SUPPLEMENTATION
  8. HUMIRA [Suspect]
     Active Substance: ADALIMUMAB
     Route: 058
     Dates: start: 20100101, end: 201505
  9. ZOLOFT [Concomitant]
     Active Substance: SERTRALINE HYDROCHLORIDE
     Indication: DEPRESSION
  10. ZOCOR [Concomitant]
     Active Substance: SIMVASTATIN
     Indication: BLOOD CHOLESTEROL INCREASED
  11. ALLOPURINOL. [Concomitant]
     Active Substance: ALLOPURINOL
     Indication: GOUT
  12. IRON [Concomitant]
     Active Substance: IRON
     Indication: ANAEMIA
  13. HUMIRA [Suspect]
     Active Substance: ADALIMUMAB
     Indication: RHEUMATOID ARTHRITIS
     Route: 058
     Dates: start: 2005, end: 2005
  14. HUMIRA [Suspect]
     Active Substance: ADALIMUMAB
     Route: 058
     Dates: start: 201505, end: 20160801
  15. ZEGERID [Concomitant]
     Active Substance: OMEPRAZOLE\SODIUM BICARBONATE
     Indication: GASTROOESOPHAGEAL REFLUX DISEASE
  16. LEVOTHYROXINE. [Concomitant]
     Active Substance: LEVOTHYROXINE
     Indication: THYROID HORMONES DECREASED
  17. NEURONTIN [Concomitant]
     Active Substance: GABAPENTIN
     Indication: NEUROPATHY PERIPHERAL

REACTIONS (44)
  - Rheumatoid arthritis [Recovered/Resolved]
  - Osteomyelitis [Recovering/Resolving]
  - Fatigue [Unknown]
  - Diarrhoea [Recovered/Resolved]
  - Spinal operation [Recovering/Resolving]
  - Myelodysplastic syndrome [Not Recovered/Not Resolved]
  - Mobility decreased [Unknown]
  - Device loosening [Recovering/Resolving]
  - Atrial fibrillation [Not Recovered/Not Resolved]
  - Procedural nausea [Recovered/Resolved]
  - Rheumatoid arthritis [Unknown]
  - Accident [Unknown]
  - Lumbar vertebral fracture [Recovering/Resolving]
  - Gene mutation identification test positive [Unknown]
  - Platelet count increased [Recovering/Resolving]
  - Neuropathy peripheral [Not Recovered/Not Resolved]
  - Pyrexia [Recovered/Resolved]
  - Rotator cuff syndrome [Recovered/Resolved]
  - Spinal fusion surgery [Recovered/Resolved]
  - Weight increased [Not Recovered/Not Resolved]
  - Frustration tolerance decreased [Unknown]
  - Fall [Recovered/Resolved]
  - Myalgia [Not Recovered/Not Resolved]
  - Device loosening [Recovering/Resolving]
  - Sleep apnoea syndrome [Not Recovered/Not Resolved]
  - Thrombocytosis [Recovering/Resolving]
  - Diabetes mellitus [Not Recovered/Not Resolved]
  - Inflammation [Unknown]
  - Tremor [Recovered/Resolved]
  - Device loosening [Unknown]
  - Thrombosis [Recovered/Resolved]
  - Rheumatoid arthritis [Recovered/Resolved]
  - Post procedural complication [Recovering/Resolving]
  - Procedural vomiting [Recovered/Resolved]
  - Pain in extremity [Unknown]
  - Spinal fusion fracture [Recovered/Resolved with Sequelae]
  - Knee arthroplasty [Unknown]
  - Hip arthroplasty [Unknown]
  - Weight decreased [Unknown]
  - Fall [Recovering/Resolving]
  - Arthrodesis [Unknown]
  - Influenza [Unknown]
  - Back pain [Not Recovered/Not Resolved]
  - Vomiting [Recovered/Resolved]

NARRATIVE: CASE EVENT DATE: 2006
